FAERS Safety Report 12162781 (Version 5)
Quarter: 2024Q2

REPORT INFORMATION
  Report Type: Report from Study
  Country: JP (occurrence: JP)
  Receive Date: 20160309
  Receipt Date: 20240530
  Transmission Date: 20240715
  Serious: Yes (Disabling, Other)
  Sender: FDA-Public Use
  Company Number: JP-SA-2016SA045212

PATIENT
  Age: 78 Year
  Sex: Male
  Weight: 46 kg

DRUGS (16)
  1. CABAZITAXEL [Suspect]
     Active Substance: CABAZITAXEL
     Indication: Prostate cancer stage IV
     Dosage: 17 MG/M2
     Route: 042
     Dates: start: 20150616, end: 20150616
  2. CABAZITAXEL [Suspect]
     Active Substance: CABAZITAXEL
     Dosage: 17 MG/M2
     Route: 042
     Dates: start: 20150714, end: 20150714
  3. CABAZITAXEL [Suspect]
     Active Substance: CABAZITAXEL
     Dosage: 17 MG/M2
     Route: 042
     Dates: start: 20150811, end: 20150811
  4. CABAZITAXEL [Suspect]
     Active Substance: CABAZITAXEL
     Dosage: 17 MG/M2
     Route: 042
     Dates: start: 20150908, end: 20150908
  5. CABAZITAXEL [Suspect]
     Active Substance: CABAZITAXEL
     Dosage: 17 MG/M2
     Route: 042
     Dates: start: 20151013, end: 20151013
  6. CABAZITAXEL [Suspect]
     Active Substance: CABAZITAXEL
     Dosage: UNK
     Route: 042
     Dates: start: 20151110, end: 20151110
  7. PREDONINE [Concomitant]
     Active Substance: PREDNISOLONE
     Indication: Prostate cancer
     Dosage: 5 MG, QD
     Route: 065
     Dates: start: 20150115, end: 20151215
  8. FAMOTIDINE [Concomitant]
     Active Substance: FAMOTIDINE
     Indication: Premedication
     Route: 042
     Dates: start: 20150811, end: 20150811
  9. POLARAMINE [Concomitant]
     Active Substance: DEXCHLORPHENIRAMINE MALEATE
     Indication: Premedication
     Dosage: 5 MG
     Route: 042
     Dates: start: 20150811, end: 20150811
  10. PROCHLORPERAZINE MALEATE [Concomitant]
     Active Substance: PROCHLORPERAZINE MALEATE
     Indication: Premedication
     Dosage: 5 MG
     Route: 048
     Dates: start: 20150811, end: 20150811
  11. PEGFILGRASTIM [Concomitant]
     Active Substance: PEGFILGRASTIM
     Indication: Prophylaxis
     Dosage: 3.6 MG, QD
     Route: 048
     Dates: start: 20150617, end: 20151110
  12. LEUPROLIDE ACETATE [Concomitant]
     Active Substance: ISOPROPYL ALCOHOL\LEUPROLIDE ACETATE
     Route: 058
  13. REBAMIPIDE [Concomitant]
     Active Substance: REBAMIPIDE
     Dosage: 300 MG, QD
     Route: 048
  14. SILODOSIN [Concomitant]
     Active Substance: SILODOSIN
     Dosage: 8 MG, QD
     Route: 048
  15. TADALAFIL [Concomitant]
     Active Substance: TADALAFIL
     Dosage: 5 MG, QD
     Route: 048
  16. TRAMADOL HYDROCHLORIDE [Concomitant]
     Active Substance: TRAMADOL HYDROCHLORIDE
     Dosage: 25 MG, QD
     Route: 048

REACTIONS (8)
  - Optic neuropathy [Not Recovered/Not Resolved]
  - Visual acuity reduced [Unknown]
  - Visual field defect [Unknown]
  - Myopia [Unknown]
  - Ophthalmological examination abnormal [Unknown]
  - Colour vision tests abnormal [Unknown]
  - Colour blindness [Unknown]
  - Blindness [Unknown]

NARRATIVE: CASE EVENT DATE: 20150801
